FAERS Safety Report 18522461 (Version 2)
Quarter: 2020Q4

REPORT INFORMATION
  Report Type: Spontaneous
  Country: US (occurrence: US)
  Receive Date: 20201119
  Receipt Date: 20201204
  Transmission Date: 20210114
  Serious: Yes (Other)
  Sender: FDA-Public Use
  Company Number: US-PFIZER INC-2020445171

PATIENT
  Age: 81 Year
  Sex: Female
  Weight: 64.85 kg

DRUGS (3)
  1. ESTRING [Suspect]
     Active Substance: ESTRADIOL
     Dosage: 2 MG, EVERY 3 MONTHS
  2. ESTROGENS CONJUGATED [Concomitant]
     Active Substance: ESTROGENS, CONJUGATED
     Dosage: 1 G, 1X/DAY (EVERY EVENING)
     Route: 067
  3. LIPITOR [Concomitant]
     Active Substance: ATORVASTATIN CALCIUM
     Dosage: UNK

REACTIONS (8)
  - Vulvovaginal discomfort [Unknown]
  - Micturition urgency [Unknown]
  - Stress urinary incontinence [Unknown]
  - Vaginal infection [Unknown]
  - Cough [Unknown]
  - Urinary incontinence [Unknown]
  - Vulvovaginal burning sensation [Unknown]
  - Mixed incontinence [Unknown]
